FAERS Safety Report 10974647 (Version 2)
Quarter: 2015Q2

REPORT INFORMATION
  Report Type: Spontaneous
  Country: US (occurrence: US)
  Receive Date: 20150401
  Receipt Date: 20150512
  Transmission Date: 20150821
  Serious: No
  Sender: FDA-Public Use
  Company Number: US-009507513-1503USA012944

PATIENT

DRUGS (3)
  1. DECADRON [Suspect]
     Active Substance: DEXAMETHASONE
     Route: 042
  2. ALOXI [Concomitant]
     Active Substance: PALONOSETRON HYDROCHLORIDE
     Route: 042
  3. EMEND [Suspect]
     Active Substance: APREPITANT
     Route: 042

REACTIONS (5)
  - Chest pain [Unknown]
  - Flushing [Unknown]
  - Wrong technique in drug usage process [Unknown]
  - Chest discomfort [Unknown]
  - Dyspnoea [Unknown]
